FAERS Safety Report 8007292-0 (Version None)
Quarter: 2011Q4

REPORT INFORMATION
  Report Type: 
  Country: None (occurrence: None)
  Receive Date: 20111227
  Receipt Date: 20111212
  Transmission Date: 20120403
  Serious: Yes (Other)
  Sender: FDA-Public Use
  Company Number: TR-MEDIMMUNE-MEDI-0014215

PATIENT
  Sex: Female
  Weight: 4.2 kg

DRUGS (2)
  1. SYNAGIS [Suspect]
     Route: 030
     Dates: start: 20111115, end: 20111115
  2. SYNAGIS [Suspect]
     Route: 030
     Dates: start: 20111020, end: 20111020

REACTIONS (4)
  - SWOLLEN TONGUE [None]
  - DYSPNOEA [None]
  - CYANOSIS [None]
  - CONVULSION [None]
